FAERS Safety Report 16567185 (Version 1)
Quarter: 2019Q3

REPORT INFORMATION
  Report Type: Spontaneous
  Country: US (occurrence: US)
  Receive Date: 20190712
  Receipt Date: 20190712
  Transmission Date: 20191004
  Serious: No
  Sender: FDA-Public Use
  Company Number: US-TEVA-2019-US-1073307

PATIENT
  Sex: Female
  Weight: 90.72 kg

DRUGS (2)
  1. TEVA ESCITALOPRAM [Suspect]
     Active Substance: ESCITALOPRAM OXALATE
     Dosage: 10 MILLIGRAM DAILY;
  2. AMIODARONE ZYDUS [Interacting]
     Active Substance: AMIODARONE
     Indication: ATRIAL FIBRILLATION
     Dosage: 400 MILLIGRAM DAILY;
     Dates: start: 20190411

REACTIONS (1)
  - Drug interaction [Unknown]
